FAERS Safety Report 6124281-1 (Version None)
Quarter: 2009Q1

REPORT INFORMATION
  Report Type: 
  Country: None (occurrence: None)
  Receive Date: 20090317
  Receipt Date: 20090121
  Transmission Date: 20090719
  Serious: Yes (Life-Threatening, Hospitalization)
  Sender: FDA-Public Use
  Company Number: 113178

PATIENT
  Age: 43 Year
  Sex: Male

DRUGS (1)
  1. ACETAMINOPHEN [Suspect]
     Indication: INTENTIONAL OVERDOSE
     Dosage: 1/2 BOTTLE/X1/ORAL
     Route: 048

REACTIONS (8)
  - ALCOHOL USE [None]
  - CHEST PAIN [None]
  - DRUG TOXICITY [None]
  - HAEMOLYTIC ANAEMIA [None]
  - HEPATOCELLULAR INJURY [None]
  - HYPOXIA [None]
  - INCORRECT DOSE ADMINISTERED [None]
  - SUICIDE ATTEMPT [None]
